FAERS Safety Report 9256211 (Version 1)
Quarter: 2013Q2

REPORT INFORMATION
  Report Type: Spontaneous
  Country: US (occurrence: US)
  Receive Date: 20130425
  Receipt Date: 20130425
  Transmission Date: 20140414
  Serious: No
  Sender: FDA-Public Use
  Company Number: US-AMGEN-USASP2012074977

PATIENT
  Age: 56 Year
  Sex: Female

DRUGS (3)
  1. NEULASTA [Suspect]
     Indication: RECTAL CANCER
     Dosage: UNK
  2. 5-FLUOROURACIL                     /00098801/ [Concomitant]
     Dosage: UNK
  3. MITOMYCIN-C [Concomitant]
     Dosage: UNK

REACTIONS (2)
  - Thrombocytopenia [Unknown]
  - Eosinophilia [Unknown]
